FAERS Safety Report 8217151 (Version 2)
Quarter: 2012Q4

REPORT INFORMATION
  Report Type: 
  Country: CA (occurrence: CA)
  Receive Date: 20111101
  Receipt Date: 20121213
  Transmission Date: 20130627
  Serious: Yes (Hospitalization, Other)
  Sender: FDA-Public Use
  Company Number: CA-BAYER-2011-103684

PATIENT
  Age: 45 Year
  Sex: Female

DRUGS (2)
  1. MIRENA [Suspect]
     Indication: HEAVY PERIODS
     Dosage: 20 mcg/24hr, CONT
     Route: 015
     Dates: start: 201104, end: 201109
  2. MIRENA [Suspect]
     Indication: ENDOMETRIOSIS

REACTIONS (4)
  - Pelvic inflammatory disease [Recovered/Resolved]
  - Pain [Recovered/Resolved]
  - Feeling abnormal [Recovered/Resolved]
  - Loss of consciousness [Recovered/Resolved]
